FAERS Safety Report 7731037-2 (Version None)
Quarter: 2011Q3

REPORT INFORMATION
  Report Type: 
  Country: None (occurrence: None)
  Receive Date: 20110906
  Receipt Date: 20110906
  Transmission Date: 20111222
  Serious: Yes (Other)
  Sender: FDA-Public Use
  Company Number: None

PATIENT
  Age: 60 Year
  Sex: Female
  Weight: 129.27 kg

DRUGS (1)
  1. METFORMIN HCL [Suspect]
     Indication: TYPE 2 DIABETES MELLITUS
     Dosage: 500MG
     Route: 048
     Dates: start: 20110401, end: 20110821

REACTIONS (3)
  - PAIN [None]
  - ABDOMINAL PAIN [None]
  - PRODUCT FORMULATION ISSUE [None]
